FAERS Safety Report 23068911 (Version 5)
Quarter: 2023Q4

REPORT INFORMATION
  Report Type: Report from Study
  Country: MX (occurrence: MX)
  Receive Date: 20231016
  Receipt Date: 20231228
  Transmission Date: 20240109
  Serious: Yes (Other)
  Sender: FDA-Public Use
  Company Number: MX-AstraZeneca-2023A217661

PATIENT
  Age: 88 Day
  Sex: Male
  Weight: 5 kg

DRUGS (6)
  1. SYNAGIS [Suspect]
     Active Substance: PALIVIZUMAB
     Indication: Respiratory syncytial virus infection
     Dosage: 0.4ML, MONTHLY
     Route: 030
     Dates: start: 20230919, end: 20230919
  2. SYNAGIS [Suspect]
     Active Substance: PALIVIZUMAB
     Dosage: 0.6ML, MONTHLY
     Route: 030
     Dates: start: 20231018, end: 20231018
  3. SYNAGIS [Suspect]
     Active Substance: PALIVIZUMAB
     Dosage: 0.7 ML, MONTHLY
     Route: 030
     Dates: start: 20231117, end: 20231117
  4. SYNAGIS [Suspect]
     Active Substance: PALIVIZUMAB
     Dosage: 0.8 ML, MONTHLY
     Route: 030
     Dates: start: 20231218
  5. BECLOMETHASONE [Concomitant]
     Active Substance: BECLOMETHASONE
     Indication: Product used for unknown indication
  6. OXYGEN [Concomitant]
     Active Substance: OXYGEN
     Indication: Product used for unknown indication

REACTIONS (12)
  - Crying [Recovered/Resolved]
  - Irritability [Recovered/Resolved]
  - Gingival pruritus [Unknown]
  - Pharyngitis [Not Recovered/Not Resolved]
  - Product administration error [Recovered/Resolved]
  - Eye injury [Recovered/Resolved]
  - Eye disorder [Recovered/Resolved]
  - Dysphonia [Unknown]
  - Secretion discharge [Unknown]
  - Cough [Recovered/Resolved]
  - Illness [Recovered/Resolved]
  - Viral infection [Recovered/Resolved]

NARRATIVE: CASE EVENT DATE: 20230919
